FAERS Safety Report 10899642 (Version 2)
Quarter: 2015Q1

REPORT INFORMATION
  Report Type: Report from Study
  Country: HU (occurrence: HU)
  Receive Date: 20150309
  Receipt Date: 20150310
  Transmission Date: 20150721
  Serious: Yes (Hospitalization)
  Sender: FDA-Public Use
  Company Number: HU-ABBVIE-15P-076-1354914-00

PATIENT
  Sex: Female

DRUGS (2)
  1. DUODOPA [Suspect]
     Active Substance: CARBIDOPA\LEVODOPA
     Dosage: MD: 7.0ML; CD: 2.5ML/H; ED: 1.4 ML
     Route: 050
     Dates: start: 20150302
  2. DUODOPA [Suspect]
     Active Substance: CARBIDOPA\LEVODOPA
     Indication: PARKINSON^S DISEASE
     Dosage: MD: 7.0ML; CD: 2.5ML/H; ED: 1.4 ML
     Route: 050
     Dates: start: 201302, end: 20150228

REACTIONS (5)
  - Freezing phenomenon [Recovered/Resolved]
  - Incorrect dose administered [Recovered/Resolved]
  - Device issue [Recovered/Resolved]
  - Device kink [Unknown]
  - Decreased activity [Recovered/Resolved]

NARRATIVE: CASE EVENT DATE: 20150228
